FAERS Safety Report 19474367 (Version 1)
Quarter: 2021Q2

REPORT INFORMATION
  Report Type: Report from Study
  Country: PK (occurrence: PK)
  Receive Date: 20210629
  Receipt Date: 20210629
  Transmission Date: 20210717
  Serious: Yes (Death, Other)
  Sender: FDA-Public Use
  Company Number: NVSC2021PK145559

PATIENT
  Age: 68 Year
  Sex: Female

DRUGS (1)
  1. ACLASTA [Suspect]
     Active Substance: ZOLEDRONIC ACID
     Indication: OSTEOPOROSIS
     Dosage: 5 MG (5 MG/100 ML, ONCE A YEAR)
     Route: 042
     Dates: start: 20191017, end: 20191017

REACTIONS (2)
  - Breast cancer [Recovered/Resolved]
  - Ascites [Fatal]

NARRATIVE: CASE EVENT DATE: 20210318
